FAERS Safety Report 18458882 (Version 1)
Quarter: 2020Q4

REPORT INFORMATION
  Report Type: Spontaneous
  Country: ES (occurrence: ES)
  Receive Date: 20201103
  Receipt Date: 20201103
  Transmission Date: 20210114
  Serious: Yes (Life-Threatening, Hospitalization)
  Sender: FDA-Public Use
  Company Number: ES-TEVA-2020-ES-1843262

PATIENT
  Age: 58 Year
  Sex: Female

DRUGS (8)
  1. BETMIGA 50MG COMPRIMIDOS DE LIBERACION PROLONGADA, 30 COMPRIMIDOS [Concomitant]
  2. NEXIUM MUPS 20 MG COMPRIMIDOS GASTRORRESISTENTES , 28 COMPRIMIDOS [Concomitant]
  3. CIPROFLOXACINO (2049A) [Suspect]
     Active Substance: CIPROFLOXACIN
     Indication: URINARY TRACT INFECTION
     Dosage: 1000 MILLIGRAM DAILY; 500 MG/12 H
     Route: 048
     Dates: start: 20200927, end: 20201005
  4. VESICARE  10MG COMPRIMIDOS RECUBIERTOS CON PELICULA , 30 COMPRIMIDOS [Concomitant]
  5. ABILIFY [Concomitant]
     Active Substance: ARIPIPRAZOLE
  6. SEROXAT 20 MG COMPRIMIDOS RECUBIERTOS CON PELICULA, 28 COMPRIMIDOS [Concomitant]
     Active Substance: PAROXETINE HYDROCHLORIDE
  7. KEPPRA 500 MG COMPRIMIDOS RECUBIERTOS CON PELICULA , 60 COMPRIMIDOS [Concomitant]
  8. QUETIAPINA 100 MG 60 COMPRIMIDOS [Concomitant]

REACTIONS (1)
  - Catatonia [Not Recovered/Not Resolved]

NARRATIVE: CASE EVENT DATE: 20201005
